FAERS Safety Report 12576025 (Version 4)
Quarter: 2016Q4

REPORT INFORMATION
  Report Type: Report from Study
  Country: KR (occurrence: KR)
  Receive Date: 20160720
  Receipt Date: 20161007
  Transmission Date: 20170207
  Serious: Yes (Hospitalization)
  Sender: FDA-Public Use
  Company Number: PHHY2016KR098171

PATIENT
  Age: 44 Year
  Sex: Male
  Weight: 76.4 kg

DRUGS (4)
  1. MACPERAN [Concomitant]
     Active Substance: METOCLOPRAMIDE HYDROCHLORIDE
     Indication: NAUSEA
     Dosage: 10 MG, UNK
     Route: 065
     Dates: start: 20160520
  2. VOTRIENT [Suspect]
     Active Substance: PAZOPANIB HYDROCHLORIDE
     Dosage: 800 MG, UNK
     Route: 048
     Dates: start: 20160614, end: 20160627
  3. VOTRIENT [Suspect]
     Active Substance: PAZOPANIB HYDROCHLORIDE
     Indication: SARCOMA
     Dosage: 800 MG, QD
     Route: 048
     Dates: start: 20160518, end: 20160603
  4. VOTRIENT [Suspect]
     Active Substance: PAZOPANIB HYDROCHLORIDE
     Dosage: 800 MG, UNK
     Route: 048
     Dates: start: 20160803

REACTIONS (9)
  - Bradycardia [Recovered/Resolved]
  - Metabolic alkalosis [Unknown]
  - Product use issue [Unknown]
  - Respiratory acidosis [Unknown]
  - Blood sodium decreased [Unknown]
  - Bradycardia [Recovered/Resolved]
  - Palpitations [Unknown]
  - Epigastric discomfort [Recovered/Resolved]
  - Calcium ionised increased [Unknown]

NARRATIVE: CASE EVENT DATE: 20160603
